FAERS Safety Report 22217556 (Version 2)
Quarter: 2023Q2

REPORT INFORMATION
  Report Type: Report from Study
  Country: US (occurrence: US)
  Receive Date: 20230417
  Receipt Date: 20230614
  Transmission Date: 20230721
  Serious: Yes (Other)
  Sender: FDA-Public Use
  Company Number: US-ABBVIE-4697837

PATIENT
  Age: 38 Year
  Sex: Female

DRUGS (5)
  1. HUMIRA [Suspect]
     Active Substance: ADALIMUMAB
     Indication: Psoriasis
     Dosage: FORM STRENGTH: 40 MILLIGRAM?CITRATE FREE
     Route: 058
     Dates: start: 20091104
  2. HUMIRA [Suspect]
     Active Substance: ADALIMUMAB
     Dosage: CITRATE FREE?FORM STRENGTH: 40 MILLIGRAM?END DATE 2009
     Route: 058
     Dates: start: 20090611
  3. HUMIRA [Suspect]
     Active Substance: ADALIMUMAB
     Dosage: CITRATE FREE?FORM STRENGTH: 40 MILLIGRAM?END DATE 2009
     Route: 058
     Dates: start: 20091027
  4. DICLOFENAC [Suspect]
     Active Substance: DICLOFENAC
     Indication: Product used for unknown indication
     Route: 065
  5. GABAPENTIN [Suspect]
     Active Substance: GABAPENTIN
     Indication: Product used for unknown indication
     Route: 065

REACTIONS (10)
  - Spinal compression fracture [Not Recovered/Not Resolved]
  - Oropharyngeal pain [Recovering/Resolving]
  - Cough [Unknown]
  - Feeling abnormal [Not Recovered/Not Resolved]
  - Extrasystoles [Unknown]
  - Endometriosis [Unknown]
  - Headache [Unknown]
  - Heart rate increased [Unknown]
  - Food allergy [Unknown]
  - Allergy to chemicals [Unknown]

NARRATIVE: CASE EVENT DATE: 20230315
